FAERS Safety Report 11641053 (Version 7)
Quarter: 2021Q3

REPORT INFORMATION
  Report Type: Report from Study
  Country: JP (occurrence: JP)
  Receive Date: 20151019
  Receipt Date: 20210826
  Transmission Date: 20211014
  Serious: Yes (Death, Hospitalization, Other)
  Sender: FDA-Public Use
  Company Number: JP-INCYTE CORPORATION-2015IN005290

PATIENT

DRUGS (13)
  1. HYDREA [Concomitant]
     Active Substance: HYDROXYUREA
     Indication: MYELOFIBROSIS
     Dosage: 1000 MG, UNK
     Route: 048
     Dates: end: 20150407
  2. HYDREA [Concomitant]
     Active Substance: HYDROXYUREA
     Dosage: 2000 MG, UNK
     Route: 048
     Dates: start: 20150408, end: 20150416
  3. HYDREA [Concomitant]
     Active Substance: HYDROXYUREA
     Dosage: 1000 MG, UNK
     Route: 048
     Dates: start: 20150514, end: 20150520
  4. HYDREA [Concomitant]
     Active Substance: HYDROXYUREA
     Dosage: 1000 MG, UNK
     Route: 048
     Dates: start: 20150918
  5. HYDREA [Concomitant]
     Active Substance: HYDROXYUREA
     Dosage: 3000 MG, UNK
     Route: 048
     Dates: start: 20150422, end: 20150423
  6. HYDREA [Concomitant]
     Active Substance: HYDROXYUREA
     Dosage: 2000 MG, UNK
     Route: 048
     Dates: start: 20150521, end: 20150917
  7. JAKAVI [Suspect]
     Active Substance: RUXOLITINIB
     Indication: MYELOFIBROSIS
     Dosage: 5 MG, QD
     Route: 048
     Dates: start: 20150424, end: 20150521
  8. JAKAVI [Suspect]
     Active Substance: RUXOLITINIB
     Dosage: 15 MG (IN TWO DIVIDED DOSES), BID
     Route: 048
     Dates: start: 20150717, end: 20150817
  9. HYDREA [Concomitant]
     Active Substance: HYDROXYUREA
     Dosage: 2500 MG, UNK
     Route: 048
     Dates: start: 20150417, end: 20150420
  10. JAKAVI [Suspect]
     Active Substance: RUXOLITINIB
     Dosage: 5 MG, BID
     Route: 048
     Dates: start: 20150522, end: 20150716
  11. JAKAVI [Suspect]
     Active Substance: RUXOLITINIB
     Dosage: 10 MG, BID
     Route: 048
     Dates: start: 20150818
  12. VIDAZA [Concomitant]
     Active Substance: AZACITIDINE
     Indication: MYELOFIBROSIS
     Dosage: 140 MG, UNK
     Route: 065
     Dates: end: 20140529
  13. HYDREA [Concomitant]
     Active Substance: HYDROXYUREA
     Dosage: 4000 MG, UNK
     Route: 048
     Dates: start: 20150424, end: 20150502

REACTIONS (10)
  - Cardiac failure congestive [Fatal]
  - Eosinophilic pneumonia [Fatal]
  - Eosinophil count increased [Unknown]
  - Immune system disorder [Unknown]
  - Cardiac ventricular thrombosis [Fatal]
  - Malignant neoplasm progression [Fatal]
  - Myelofibrosis [Fatal]
  - Pericarditis [Fatal]
  - Concomitant disease aggravated [Unknown]
  - Pneumonia cytomegaloviral [Fatal]

NARRATIVE: CASE EVENT DATE: 20150717
